FAERS Safety Report 18548523 (Version 2)
Quarter: 2020Q4

REPORT INFORMATION
  Report Type: Spontaneous
  Country: DE (occurrence: DE)
  Receive Date: 20201126
  Receipt Date: 20201207
  Transmission Date: 20210114
  Serious: Yes (Hospitalization, Other)
  Sender: FDA-Public Use
  Company Number: DE-SA-2020SA330310

PATIENT

DRUGS (8)
  1. PREDNISOLONE. [Concomitant]
     Active Substance: PREDNISOLONE
     Dosage: 90 MG
     Route: 065
     Dates: start: 20200819
  2. RITUXIMAB. [Concomitant]
     Active Substance: RITUXIMAB
     Dosage: 375 MG/M2, QW
     Route: 065
     Dates: start: 20200811, end: 20200811
  3. RITUXIMAB. [Concomitant]
     Active Substance: RITUXIMAB
     Dosage: UNK
     Route: 065
     Dates: start: 20200818, end: 20200818
  4. RITUXIMAB. [Concomitant]
     Active Substance: RITUXIMAB
     Dosage: UNK
     Route: 065
     Dates: start: 20200825, end: 20200825
  5. RITUXIMAB. [Concomitant]
     Active Substance: RITUXIMAB
     Dosage: UNK
     Route: 065
     Dates: start: 20200901, end: 20200901
  6. AMOXICILLIN. [Concomitant]
     Active Substance: AMOXICILLIN
     Indication: URINARY TRACT INFECTION
  7. CABLIVI [Suspect]
     Active Substance: CAPLACIZUMAB-YHDP
     Dosage: UNK UNK, QD
     Route: 065
     Dates: start: 20200818, end: 20200828
  8. CABLIVI [Suspect]
     Active Substance: CAPLACIZUMAB-YHDP
     Dosage: UNK UNK, QD
     Route: 065
     Dates: start: 20200901, end: 20200903

REACTIONS (10)
  - Arthralgia [Unknown]
  - Pyrexia [Unknown]
  - Performance status decreased [Unknown]
  - Blood lactate dehydrogenase abnormal [Unknown]
  - Vomiting [Unknown]
  - Culture urine positive [Unknown]
  - Parvovirus B19 test positive [Unknown]
  - Off label use [Unknown]
  - Thrombotic thrombocytopenic purpura [Unknown]
  - Platelet count decreased [Unknown]

NARRATIVE: CASE EVENT DATE: 2020
